FAERS Safety Report 10648860 (Version 1)
Quarter: 2014Q4

REPORT INFORMATION
  Report Type: Spontaneous
  Country: US (occurrence: None)
  Receive Date: 20141211
  Receipt Date: 20141211
  Transmission Date: 20150529
  Serious: Yes (Hospitalization)
  Sender: FDA-Public Use
  Company Number: None

PATIENT
  Age: 82 Year
  Sex: Male
  Weight: 131.8 kg

DRUGS (1)
  1. ASPIRIN. [Suspect]
     Active Substance: ASPIRIN
     Indication: ATRIAL FIBRILLATION
     Route: 048
     Dates: start: 20101130, end: 20141002

REACTIONS (7)
  - Hypotension [None]
  - Hypophagia [None]
  - Blood urea increased [None]
  - Gastric haemorrhage [None]
  - Tachycardia [None]
  - Blood creatinine increased [None]
  - Asthenia [None]

NARRATIVE: CASE EVENT DATE: 20141002
